FAERS Safety Report 6290705-2 (Version None)
Quarter: 2009Q3

REPORT INFORMATION
  Report Type: 
  Country: None (occurrence: None)
  Receive Date: 20090727
  Receipt Date: 20090309
  Transmission Date: 20100115
  Serious: Yes (Hospitalization)
  Sender: FDA-Public Use
  Company Number: OMPQ-PR-0903S-0161

PATIENT
  Age: 64 Year
  Sex: Male

DRUGS (3)
  1. OMNIPAQUE 300 [Suspect]
     Indication: DRUG USE FOR UNKNOWN INDICATION
     Dosage: SINGLE DOSE, IV
     Route: 042
     Dates: start: 20090211, end: 20090211
  2. APIXABAN [Concomitant]
  3. ENOXAPARIN SODIUM [Concomitant]

REACTIONS (1)
  - HYPERSENSITIVITY [None]
